FAERS Safety Report 6562466-0 (Version None)
Quarter: 2010Q1

REPORT INFORMATION
  Report Type: 
  Country: None (occurrence: None)
  Receive Date: 20100130
  Receipt Date: 20091104
  Transmission Date: 20100710
  Serious: No
  Sender: FDA-Public Use
  Company Number: US-ABBOTT-09P-163-0607797-00

PATIENT
  Weight: 59.02 kg

DRUGS (7)
  1. HUMIRA [Suspect]
     Indication: PSORIASIS
     Dates: start: 20070101, end: 20091029
  2. HUMIRA [Suspect]
     Indication: PSORIATIC ARTHROPATHY
  3. OXYCONTIN [Concomitant]
     Indication: INTERVERTEBRAL DISC PROTRUSION
     Route: 048
  4. EFFEXOR [Concomitant]
     Indication: DEPRESSION
     Route: 048
  5. METHOTREXATE [Concomitant]
     Indication: PSORIASIS
     Route: 048
     Dates: end: 20070101
  6. METHOTREXATE [Concomitant]
     Dates: start: 20070101
  7. AVAPRO [Concomitant]
     Indication: HYPERTENSION
     Route: 048

REACTIONS (5)
  - INJECTION SITE PRURITUS [None]
  - INJECTION SITE SWELLING [None]
  - OEDEMA PERIPHERAL [None]
  - PAIN IN EXTREMITY [None]
  - PSORIASIS [None]
